FAERS Safety Report 6078700-X (Version None)
Quarter: 2009Q1

REPORT INFORMATION
  Report Type: 
  Country: None (occurrence: None)
  Receive Date: 20090216
  Receipt Date: 20090206
  Transmission Date: 20090719
  Serious: Yes (Other)
  Sender: FDA-Public Use
  Company Number: US-AMGEN-QUU291830

PATIENT
  Sex: Female

DRUGS (2)
  1. ENBREL [Suspect]
     Indication: RHEUMATOID ARTHRITIS
     Route: 058
     Dates: start: 19980101
  2. UNSPECIFIED OPHTHALMIC PREPARATION [Concomitant]
     Route: 047

REACTIONS (8)
  - BREAST CANCER [None]
  - COMPRESSION FRACTURE [None]
  - HERPES ZOSTER [None]
  - HYSTERECTOMY [None]
  - INTERVERTEBRAL DISC DISORDER [None]
  - OSTEOPOROSIS [None]
  - PRESYNCOPE [None]
  - SCIATICA [None]
